FAERS Safety Report 5158877-0 (Version None)
Quarter: 2006Q4

REPORT INFORMATION
  Report Type: 
  Country: None (occurrence: None)
  Receive Date: 20061128
  Receipt Date: 20061122
  Transmission Date: 20070319
  Serious: Yes (Other)
  Sender: FDA-Public Use
  Company Number: US-JNJFOC-20061006385

PATIENT
  Sex: Female
  Weight: 50.8 kg

DRUGS (4)
  1. TOPAMAX [Suspect]
     Indication: BIPOLAR DISORDER
     Route: 048
  2. WELLBUTRIN [Concomitant]
     Indication: DEPRESSION
     Route: 048
  3. WELLBUTRIN [Concomitant]
     Indication: BIPOLAR DISORDER
     Route: 048
  4. SEROQUEL [Concomitant]
     Indication: BIPOLAR DISORDER

REACTIONS (3)
  - ABORTION SPONTANEOUS [None]
  - DRUG EXPOSURE DURING PREGNANCY [None]
  - URINARY TRACT INFECTION [None]
